FAERS Safety Report 8134239-9 (Version None)
Quarter: 2012Q1

REPORT INFORMATION
  Report Type: 
  Country: None (occurrence: None)
  Receive Date: 20120209
  Receipt Date: 20120131
  Transmission Date: 20120608
  Serious: Yes (Hospitalization, Other)
  Sender: FDA-Public Use
  Company Number: 2012MA001356

PATIENT
  Sex: Female

DRUGS (4)
  1. CARDIZEM [Concomitant]
  2. LATENIN [Concomitant]
  3. DIGOXIN [Suspect]
     Dosage: 0.25 MG;QD;PO
     Route: 048
     Dates: start: 20040401, end: 20080601
  4. LOPRESSOR [Concomitant]

REACTIONS (11)
  - RETINAL ISCHAEMIA [None]
  - ARRHYTHMIA [None]
  - PAIN [None]
  - ANXIETY [None]
  - ATRIAL FIBRILLATION [None]
  - VENTRICULAR EXTRASYSTOLES [None]
  - HEART INJURY [None]
  - ECONOMIC PROBLEM [None]
  - UNEVALUABLE EVENT [None]
  - PALPITATIONS [None]
  - VISUAL IMPAIRMENT [None]
